FAERS Safety Report 21713485 (Version 3)
Quarter: 2023Q1

REPORT INFORMATION
  Report Type: Spontaneous
  Country: US (occurrence: US)
  Receive Date: 20221212
  Receipt Date: 20230120
  Transmission Date: 20230418
  Serious: Yes (Death, Hospitalization, Other)
  Sender: FDA-Public Use
  Company Number: US-INCYTE CORPORATION-2022IN012007

PATIENT

DRUGS (23)
  1. JAKAFI [Suspect]
     Active Substance: RUXOLITINIB
     Indication: Myelofibrosis
     Dosage: 5 MILLIGRAM, BID
     Route: 048
     Dates: start: 202008, end: 20221206
  2. JAKAFI [Suspect]
     Active Substance: RUXOLITINIB
     Dosage: TAKE 1 TABLET (10 MG TOTAL) 2 (TWO) TIMES A DAY
     Route: 048
     Dates: start: 20221117
  3. DARBEPOETIN ALFA [Concomitant]
     Active Substance: DARBEPOETIN ALFA
     Indication: Product used for unknown indication
     Route: 065
  4. TYLENOL [Concomitant]
     Active Substance: ACETAMINOPHEN
     Indication: Pain
     Dosage: TAKE 2 350 MG TABLETS (640 MG TOTAL) EVERY 4 HOURS AS NEEDED
     Route: 048
     Dates: start: 20200713
  5. AUGMENTIN [Concomitant]
     Active Substance: AMOXICILLIN\CLAVULANATE POTASSIUM
     Indication: Product used for unknown indication
     Dosage: TAKE 1 500-150 MG TABLET 2 (TWO) TIMES A DAY
     Route: 048
     Dates: start: 20221117
  6. TUMS [Concomitant]
     Active Substance: CALCIUM CARBONATE
     Indication: Dyspepsia
     Dosage: TAKE 2 500 MG TABLET (1,000 MG TOTAL) DAILY AS NEEDED
     Route: 048
     Dates: start: 20221117
  7. VITAMIN D3 [Concomitant]
     Active Substance: CHOLECALCIFEROL
     Indication: Product used for unknown indication
     Dosage: TAKE 2,000 UNITS DAILY WITH LUNCH
     Route: 048
     Dates: start: 20211103
  8. DEPAKOTE [Concomitant]
     Active Substance: DIVALPROEX SODIUM
     Indication: Product used for unknown indication
     Dosage: TAKE 3 250 MG TABLETS (750 MG TOTAL) 2 (TWO) TIMES A DAY
     Route: 048
     Dates: start: 20210727, end: 20221010
  9. MONODOX [DOXYCYCLINE MONOHYDRATE] [Concomitant]
     Indication: Product used for unknown indication
     Dosage: TAKE 1 CAPSULE (100 MG TOTAL) 2 (TWO) TIMES A DAY
     Route: 048
     Dates: start: 20210524
  10. JARDIANCE [Concomitant]
     Active Substance: EMPAGLIFLOZIN
     Indication: Product used for unknown indication
     Dosage: TAKE 1 TABLET (10 MG TOTAL) DAILY
     Route: 048
     Dates: start: 20221118
  11. DIFLUCAN [Concomitant]
     Active Substance: FLUCONAZOLE
     Indication: Product used for unknown indication
     Dosage: TAKE 1 TABLET (200 MG TOTAL) DAILY
     Route: 048
     Dates: start: 20210524
  12. FOLVITE [FOLIC ACID] [Concomitant]
     Indication: Product used for unknown indication
     Dosage: TAKE 1 TABLET (1 MG TOTAL) EVERY MORNING
     Route: 048
     Dates: start: 20221118
  13. NEURONTIN [Concomitant]
     Active Substance: GABAPENTIN
     Indication: Product used for unknown indication
     Dosage: TAKE 2 100 MG CAPSULES (200 MG TOTAL) 2 (TWO) TIMES A DAY
     Route: 048
     Dates: start: 20221117
  14. KLOR-CON [Concomitant]
     Active Substance: POTASSIUM CHLORIDE
     Indication: Product used for unknown indication
     Dosage: TAKE 20 MEQ DAILY
     Route: 048
     Dates: start: 20220408
  15. SYNTHROID [Concomitant]
     Active Substance: LEVOTHYROXINE SODIUM
     Indication: Product used for unknown indication
     Dosage: TAKE 1 TABLET (100 MCG TOTAL) EARLY MORNING BEFORE BREAKFAST
     Route: 048
     Dates: start: 20220613
  16. ZAROXOLYN [Concomitant]
     Active Substance: METOLAZONE
     Indication: Product used for unknown indication
     Dosage: TAKE 1 5 MG TABLET (5 MG TOTAL) DAILY
     Route: 048
     Dates: start: 20221118
  17. THERA-M [Concomitant]
     Indication: Product used for unknown indication
     Dosage: TAKE 1 TABLET (9 MG) DAILY
     Route: 048
     Dates: start: 20221118
  18. IRON [Concomitant]
     Active Substance: IRON
     Indication: Product used for unknown indication
     Dosage: TAKE 1 TABLET (400 MCG) DAILY
     Route: 048
     Dates: start: 20210524
  19. PROTONIX [Concomitant]
     Active Substance: PANTOPRAZOLE SODIUM
     Indication: Product used for unknown indication
     Dosage: TAKE 1 TABLET (40 MG TOTAL) 2 (TWO) TIMES A DAY
     Route: 048
     Dates: start: 20220408
  20. MIRALAX [Concomitant]
     Active Substance: POLYETHYLENE GLYCOL 3350
     Indication: Product used for unknown indication
     Dosage: TAKE 1 PACKET (17 G TOTAL) DAILY
     Route: 048
     Dates: start: 20221118
  21. REVATIO [Concomitant]
     Active Substance: SILDENAFIL CITRATE
     Indication: Pulmonary hypertension
     Dosage: TAKE 1 TABLET (20 MG TOTAL) 3 (THREE) TIMES A DAY
     Route: 048
     Dates: start: 20221117
  22. SOAANZ [Concomitant]
     Active Substance: TORSEMIDE
     Indication: Product used for unknown indication
     Dosage: TAKE 2 TABLETS (80 MG TOTAL) 2 (TWO) TIMES A DAY
     Route: 048
     Dates: start: 20221117
  23. COUMADIN [Concomitant]
     Active Substance: WARFARIN SODIUM
     Indication: Product used for unknown indication
     Dosage: TAKE 1 TABLET (1 MG TOTAL) DAILY
     Route: 048
     Dates: start: 20221117

REACTIONS (32)
  - Cardiogenic shock [Fatal]
  - Chronic kidney disease [Unknown]
  - Ischaemic cardiomyopathy [Unknown]
  - Subarachnoid haemorrhage [Unknown]
  - Subdural haematoma [Unknown]
  - Arrhythmia [Unknown]
  - Cardiac failure congestive [Unknown]
  - Device related infection [Unknown]
  - Cerebral haemorrhage [Unknown]
  - Syncope [Unknown]
  - Circulatory collapse [Unknown]
  - Hemiparesis [Unknown]
  - Neuropathy peripheral [Unknown]
  - Thrombocytopenia [Unknown]
  - Unintentional medical device removal [Unknown]
  - Nucleated red cells [Unknown]
  - Acute stress disorder [Unknown]
  - International normalised ratio increased [Unknown]
  - Catheter site haemorrhage [Recovered/Resolved]
  - Catheter site haematoma [Unknown]
  - Malnutrition [Unknown]
  - Physical deconditioning [Unknown]
  - Back pain [Unknown]
  - Paraesthesia [Unknown]
  - Hypoaesthesia [Unknown]
  - Tooth disorder [Unknown]
  - Periodontal disease [Unknown]
  - Atelectasis [Unknown]
  - Treatment noncompliance [Unknown]
  - Hypertension [Unknown]
  - Anaemia [Unknown]
  - Ecchymosis [Unknown]

NARRATIVE: CASE EVENT DATE: 20201007
